FAERS Safety Report 17906786 (Version 2)
Quarter: 2020Q2

REPORT INFORMATION
  Report Type: Spontaneous
  Country: JP (occurrence: JP)
  Receive Date: 20200617
  Receipt Date: 20200618
  Transmission Date: 20200714
  Serious: Yes (Hospitalization, Other)
  Sender: FDA-Public Use
  Company Number: JP-PFIZER INC-2020234079

PATIENT
  Age: 70 Year

DRUGS (1)
  1. LORBRENA [Suspect]
     Active Substance: LORLATINIB
     Indication: LUNG NEOPLASM MALIGNANT
     Dosage: 75 MG, CYCLIC (DAILY 1 WEEK ON FOLLOWED BY 1 WEEK OFF)
     Dates: start: 201909

REACTIONS (2)
  - Nervous system disorder [Not Recovered/Not Resolved]
  - Cerebral infarction [Unknown]
